FAERS Safety Report 14204595 (Version 1)
Quarter: 2017Q4

REPORT INFORMATION
  Report Type: Spontaneous
  Country: US (occurrence: None)
  Receive Date: 20171117
  Receipt Date: 20171117
  Transmission Date: 20180321
  Serious: Yes (Hospitalization, Other)
  Sender: FDA-Public Use
  Company Number: None

PATIENT
  Age: 76 Year
  Sex: Female

DRUGS (6)
  1. CHLORMEZANONE [Suspect]
     Active Substance: CHLORMEZANONE
     Dates: start: 20130801, end: 20130929
  2. LEXAPRO [Concomitant]
     Active Substance: ESCITALOPRAM OXALATE
  3. ULTRAM [Concomitant]
     Active Substance: TRAMADOL HYDROCHLORIDE
  4. CLARITIN [Concomitant]
     Active Substance: LORATADINE
  5. HCTZ [Concomitant]
     Active Substance: HYDROCHLOROTHIAZIDE
  6. HERBAL SUPPLEMENTS [Suspect]
     Active Substance: HERBALS
     Dates: start: 201107, end: 20130815

REACTIONS (10)
  - Alanine aminotransferase increased [None]
  - Drug-induced liver injury [None]
  - Chromaturia [None]
  - Blood alkaline phosphatase increased [None]
  - Gallbladder enlargement [None]
  - Blood bilirubin increased [None]
  - Yellow skin [None]
  - Cholecystitis [None]
  - Aspartate aminotransferase increased [None]
  - Hepatitis acute [None]

NARRATIVE: CASE EVENT DATE: 20130920
